FAERS Safety Report 12492754 (Version 1)
Quarter: 2016Q2

REPORT INFORMATION
  Report Type: Spontaneous
  Country: US (occurrence: US)
  Receive Date: 20160623
  Receipt Date: 20160623
  Transmission Date: 20160815
  Serious: No
  Sender: FDA-Public Use
  Company Number: US-MYLANLABS-2015M1027119

PATIENT
  Sex: Female
  Weight: 86.17 kg

DRUGS (3)
  1. PERFOROMIST [Suspect]
     Active Substance: FORMOTEROL FUMARATE DIHYDRATE
     Indication: OFF LABEL USE
  2. BUDESONIDE TEVA [Suspect]
     Active Substance: BUDESONIDE
     Indication: ASTHMA
     Dosage: 0.5 MG, BID
     Route: 055
     Dates: start: 2005
  3. PERFOROMIST [Suspect]
     Active Substance: FORMOTEROL FUMARATE DIHYDRATE
     Indication: ASTHMA
     Dosage: 20 ?G/2ML, BID
     Route: 055
     Dates: start: 2005

REACTIONS (2)
  - Wrong technique in product usage process [Recovered/Resolved]
  - No adverse event [Recovered/Resolved]

NARRATIVE: CASE EVENT DATE: 2005
